FAERS Safety Report 6316611-2 (Version None)
Quarter: 2009Q3

REPORT INFORMATION
  Report Type: 
  Country: None (occurrence: None)
  Receive Date: 20090820
  Receipt Date: 20090813
  Transmission Date: 20100115
  Serious: Yes (Hospitalization, Other)
  Sender: FDA-Public Use
  Company Number: PHHY2009FI01190

PATIENT
  Sex: Male

DRUGS (3)
  1. ACLASTA [Suspect]
     Indication: OSTEOPOROSIS
     Dosage: UNK
     Dates: start: 20081001
  2. PROTELOS [Concomitant]
  3. PERSANTINE [Concomitant]

REACTIONS (23)
  - ARTHRALGIA [None]
  - BACK PAIN [None]
  - DIARRHOEA [None]
  - HAEMOGLOBIN DECREASED [None]
  - HAEMORRHAGE [None]
  - HYPERHIDROSIS [None]
  - HYPOTONIA [None]
  - INFLUENZA LIKE ILLNESS [None]
  - JOINT STIFFNESS [None]
  - LOOSE TOOTH [None]
  - MUSCLE SPASMS [None]
  - MUSCULAR WEAKNESS [None]
  - MUSCULOSKELETAL STIFFNESS [None]
  - NECK PAIN [None]
  - OEDEMA PERIPHERAL [None]
  - PAIN IN JAW [None]
  - POSTURE ABNORMAL [None]
  - SPINAL COMPRESSION FRACTURE [None]
  - TOOTHACHE [None]
  - VASCULAR RUPTURE [None]
  - VISUAL ACUITY REDUCED [None]
  - WEIGHT DECREASED [None]
  - WOUND [None]
